FAERS Safety Report 9437430 (Version 1)
Quarter: 2013Q3

REPORT INFORMATION
  Report Type: Spontaneous
  Country: US (occurrence: US)
  Receive Date: 20130802
  Receipt Date: 20130802
  Transmission Date: 20140515
  Serious: No
  Sender: FDA-Public Use
  Company Number: US-BAYER-2013-092149

PATIENT
  Sex: Female

DRUGS (1)
  1. ANGELIQ [Suspect]

REACTIONS (2)
  - Drug dose omission [None]
  - Product quality issue [None]
